FAERS Safety Report 7936037-5 (Version None)
Quarter: 2011Q4

REPORT INFORMATION
  Report Type: 
  Country: None (occurrence: None)
  Receive Date: 20111123
  Receipt Date: 20111116
  Transmission Date: 20120403
  Serious: Yes (Other)
  Sender: FDA-Public Use
  Company Number: IL-US-EMD SERONO, INC.-7096661

PATIENT
  Age: 52 Year
  Sex: Female

DRUGS (5)
  1. PAMID [Concomitant]
  2. REBIF [Suspect]
     Indication: RELAPSING-REMITTING MULTIPLE SCLEROSIS
     Route: 058
     Dates: start: 20070101
  3. FEXOFENADINE HCL [Concomitant]
  4. SIMVASTATIN [Concomitant]
  5. PROVIGIL [Concomitant]

REACTIONS (3)
  - CYANOSIS [None]
  - THROMBOSIS [None]
  - JOINT SWELLING [None]
